FAERS Safety Report 4908984-X (Version None)
Quarter: 2006Q1

REPORT INFORMATION
  Report Type: 
  Country: None (occurrence: None)
  Receive Date: 20060209
  Receipt Date: 20030428
  Transmission Date: 20060701
  Serious: Yes (Other)
  Sender: FDA-Public Use
  Company Number: HQ2985326JUN2002

PATIENT
  Age: 56 Year
  Sex: Male

DRUGS (3)
  1. MYLOTARG [Suspect]
     Indication: ACUTE MYELOID LEUKAEMIA
     Dosage: 10 MG 1X PER 1 DAY; INTRAVENOUS
     Route: 042
     Dates: start: 20020609, end: 20020609
  2. CYTARABINE [Suspect]
     Indication: ACUTE MYELOID LEUKAEMIA
     Dosage: 165 MG DAILY VIA CONTINUOUS INFUSION, INTRAMUSCULAR
     Route: 030
     Dates: start: 20020606, end: 20020613
  3. DAUNORUBICIN HCL [Suspect]
     Indication: ACUTE MYELOID LEUKAEMIA
     Dosage: 78 MG 1X PER 1 DAY; INTRAVENOUS
     Route: 042
     Dates: start: 20020606, end: 20020608

REACTIONS (9)
  - ANOREXIA [None]
  - BONE MARROW FAILURE [None]
  - CHOLELITHIASIS [None]
  - HYPERBILIRUBINAEMIA [None]
  - HYPOXIA [None]
  - INFECTION [None]
  - ORAL INTAKE REDUCED [None]
  - RETINAL HAEMORRHAGE [None]
  - WEIGHT DECREASED [None]
